FAERS Safety Report 13578667 (Version 1)
Quarter: 2017Q2

REPORT INFORMATION
  Report Type: Spontaneous
  Country: US (occurrence: US)
  Receive Date: 20170524
  Receipt Date: 20170524
  Transmission Date: 20170830
  Serious: Yes (Life-Threatening, Disabling, Other)
  Sender: FDA-Public Use
  Company Number: US-009507513-1705USA010550

PATIENT
  Sex: Female
  Weight: 105.22 kg

DRUGS (33)
  1. CYCLOBENZAPRINE HYDROCHLORIDE. [Concomitant]
     Active Substance: CYCLOBENZAPRINE HYDROCHLORIDE
     Indication: MUSCLE SPASMS
     Dosage: 1 TABLET AS NEEDED EVERY 4 HOURS
     Route: 048
  2. CINNAMON. [Concomitant]
     Active Substance: CINNAMON
     Indication: METABOLIC DISORDER
     Dosage: 2 THREE / DAY
  3. CRANBERRY. [Concomitant]
     Active Substance: CRANBERRY
     Indication: URINARY TRACT DISORDER
     Dosage: 1 AT NIGHT OR AS PRESCRIBED
  4. PHOSPHATIDYL SERINE [Concomitant]
     Active Substance: PHOSPHATIDYL SERINE
     Indication: MEMORY IMPAIRMENT
     Dosage: 1 THREE TIMES DAILY WITH WATER
  5. CHONDROITIN SULFATE SODIUM (+) GLUCOSAMINE SULFATE [Concomitant]
     Indication: BONE DISORDER
     Dosage: DAILY AS PRESCRIBED
  6. ASPIRIN. [Concomitant]
     Active Substance: ASPIRIN
     Dosage: 2 TABS TWICE A DAY AS NEEDED
  7. FOLIC ACID. [Concomitant]
     Active Substance: FOLIC ACID
     Indication: CARDIAC DISORDER
  8. LIDODERM [Concomitant]
     Active Substance: LIDOCAINE
     Indication: ANALGESIC THERAPY
     Dosage: 1 PATCH, FOR 12 HRS AS NEEDED
  9. CALCIUM (UNSPECIFIED) (+) CHOLECALCIFEROL [Concomitant]
     Indication: BONE DECALCIFICATION
     Dosage: 1 2XS/DAY
  10. BLADDERWRACK [Concomitant]
     Indication: THYROID DISORDER
     Dosage: 1 DF, QD
  11. DEXTROSE. [Concomitant]
     Active Substance: DEXTROSE
     Indication: METABOLIC DISORDER
     Dosage: 1 CAPSULE 3XS/DAY WITH FOOD
  12. ZINC (UNSPECIFIED) [Concomitant]
     Active Substance: ZINC
     Indication: IMMUNE SYSTEM DISORDER
  13. JANUVIA [Suspect]
     Active Substance: SITAGLIPTIN PHOSPHATE
     Indication: BLOOD GLUCOSE
     Dosage: 1 TABLET A DAY
     Route: 048
     Dates: end: 20151211
  14. IRON (UNSPECIFIED) [Concomitant]
     Active Substance: IRON
     Indication: ANAEMIA PROPHYLAXIS
     Dosage: 1 PILL WITHOUT FOOD 2XS A WEEKS
  15. MILK THISTLE [Concomitant]
     Active Substance: MILK THISTLE
     Indication: LIVER FUNCTION TEST ABNORMAL
     Dosage: 1 CAP 3XS/DAY
  16. POTASSIUM IODIDE. [Concomitant]
     Active Substance: POTASSIUM IODIDE
     Indication: MINERAL SUPPLEMENTATION
     Dosage: 1 PER DAY WITH FOOD AND WATER
  17. HYDROCHLOROTHIAZIDE. [Concomitant]
     Active Substance: HYDROCHLOROTHIAZIDE
     Indication: POLYURIA
     Dosage: 1 PILL IN THE MORNING
  18. GINKGO [Concomitant]
     Active Substance: GINKGO
     Indication: MEMORY IMPAIRMENT
     Dosage: 2 TWICE DAILY
  19. INOSITOL [Concomitant]
     Active Substance: INOSITOL
     Indication: METABOLIC DISORDER
     Dosage: 1 CAPSULE PER DAY
  20. CYANOCOBALAMIN. [Concomitant]
     Active Substance: CYANOCOBALAMIN
     Indication: CALCIUM METABOLISM DISORDER
     Dosage: 1 CAP / DAY WITH FOOD
  21. MUCINEX [Concomitant]
     Active Substance: GUAIFENESIN
     Indication: PROPHYLAXIS
     Dosage: 1 TABLET, MORNING AND NIGHT
     Route: 048
  22. TRAMADOL HYDROCHLORIDE. [Concomitant]
     Active Substance: TRAMADOL HYDROCHLORIDE
     Indication: BACK PAIN
     Dosage: 1 TABLET AS NEEDED EVERY 4 HOURS
  23. LATANOPROST. [Concomitant]
     Active Substance: LATANOPROST
     Indication: INTRAOCULAR PRESSURE TEST ABNORMAL
     Dosage: 1 DROP EA EYE AT NIGHT
     Route: 047
  24. ERYTHROMYCIN. [Concomitant]
     Active Substance: ERYTHROMYCIN
     Indication: ANTIBIOTIC THERAPY
     Dosage: 2XS DAILY
  25. FOLIC ACID. [Concomitant]
     Active Substance: FOLIC ACID
     Indication: CARDIOVASCULAR DISORDER
     Dosage: 800 MICROGRAM, QAM
  26. ALLEGRA [Concomitant]
     Active Substance: FEXOFENADINE HYDROCHLORIDE
     Indication: HYPERSENSITIVITY
     Dosage: 1 TAB, PER NIGHT
  27. THYROXIN [Concomitant]
     Active Substance: LEVOTHYROXINE
     Indication: THYROID DISORDER
     Dosage: 1 CAP DAILY W/WATER
  28. NATURES OWN LIVER TONIC [Concomitant]
     Indication: HEPATIC STEATOSIS
     Dosage: 2 IN THE MORNING
  29. GERITOL COMPLETE [Concomitant]
     Indication: ROUTINE HEALTH MAINTENANCE
     Dosage: 1 2XS /DAY WITH FOOD
  30. POLYETHYLENE GLYCOL [Concomitant]
     Active Substance: POLYETHYLENE GLYCOLS
     Indication: LAXATIVE SUPPORTIVE CARE
     Dosage: 17 GRAMS INTO 4-8OZ AS NEEDED
  31. COLACE [Concomitant]
     Active Substance: DOCUSATE SODIUM
     Indication: CONSTIPATION PROPHYLAXIS
     Dosage: 1 CAPSULE, TWICE DAILY
  32. KELP [Concomitant]
     Active Substance: KELP
     Indication: RADIOACTIVE IODINE THERAPY
     Dosage: 5 PER DAY
  33. BOVINE PITUITARY [Concomitant]
     Dosage: 1 CAPSULE PER DAY

REACTIONS (11)
  - Internal haemorrhage [Unknown]
  - Gastric haemorrhage [Unknown]
  - Renal pain [Unknown]
  - Asthenia [Unknown]
  - Constipation [Unknown]
  - Suicidal ideation [Recovered/Resolved]
  - Dehydration [Unknown]
  - Bone pain [Unknown]
  - Gastritis [Unknown]
  - Diarrhoea [Unknown]
  - Headache [Unknown]
